FAERS Safety Report 19369701 (Version 2)
Quarter: 2021Q4

REPORT INFORMATION
  Report Type: Spontaneous
  Country: US (occurrence: US)
  Receive Date: 20210603
  Receipt Date: 20211001
  Transmission Date: 20220303
  Serious: No
  Sender: FDA-Public Use
  Company Number: US-PFIZER INC-2021063567

PATIENT
  Age: 74 Year
  Sex: Female
  Weight: 46.27 kg

DRUGS (1)
  1. NARDIL [Suspect]
     Active Substance: PHENELZINE SULFATE
     Dosage: UNK
     Dates: start: 1981

REACTIONS (2)
  - Eating disorder [Unknown]
  - Insomnia [Unknown]
